FAERS Safety Report 21049938 (Version 2)
Quarter: 2022Q3

REPORT INFORMATION
  Report Type: Spontaneous
  Country: US (occurrence: US)
  Receive Date: 20220706
  Receipt Date: 20220824
  Transmission Date: 20221027
  Serious: No
  Sender: FDA-Public Use
  Company Number: US-JUBILANT PHARMA LTD-2022US000250

PATIENT
  Sex: Female

DRUGS (1)
  1. DRAXIMAGE DTPA [Suspect]
     Active Substance: TECHNETIUM TC-99M PENTETATE
     Indication: Ventilation/perfusion scan
     Dosage: 31.5 MCI, SINGLE DOSE
     Dates: start: 20220603, end: 20220603

REACTIONS (1)
  - Drug ineffective [Unknown]
